FAERS Safety Report 9171826 (Version 1)
Quarter: 2013Q1

REPORT INFORMATION
  Report Type: Spontaneous
  Country: US (occurrence: None)
  Receive Date: 20130313
  Receipt Date: 20130313
  Transmission Date: 20140127
  Serious: No
  Sender: FDA-Public Use
  Company Number: AEUSA201200538

PATIENT
  Age: 45 Year
  Sex: Female

DRUGS (2)
  1. PROLASTIN-C [Suspect]
     Indication: ALPHA-1 ANTI-TRYPSIN DEFICIENCY
     Dosage: 1196 MG; QW; IV
     Route: 042
     Dates: start: 2010
  2. BENADRYL [Concomitant]

REACTIONS (3)
  - Pruritus [None]
  - Contusion [None]
  - Product quality issue [None]
